FAERS Safety Report 10168333 (Version 4)
Quarter: 2015Q1

REPORT INFORMATION
  Report Type: Report from Study
  Country: US (occurrence: US)
  Receive Date: 20140512
  Receipt Date: 20150317
  Transmission Date: 20150720
  Serious: Yes (Hospitalization, Other)
  Sender: FDA-Public Use
  Company Number: PHEH2014US009570

PATIENT
  Age: 81 Year
  Sex: Female
  Weight: 78.5 kg

DRUGS (1)
  1. GILENYA [Suspect]
     Active Substance: FINGOLIMOD HYDROCHLORIDE
     Indication: MULTIPLE SCLEROSIS
     Dosage: 0.5 MG, QD
     Route: 048
     Dates: start: 20111102

REACTIONS (9)
  - Swelling [Unknown]
  - Cough [Not Recovered/Not Resolved]
  - Polyuria [Unknown]
  - Tremor [Not Recovered/Not Resolved]
  - Wheezing [Unknown]
  - Chronic obstructive pulmonary disease [Recovered/Resolved]
  - Oedema peripheral [Unknown]
  - Dysphonia [Unknown]
  - Weight decreased [Unknown]

NARRATIVE: CASE EVENT DATE: 20140819
